FAERS Safety Report 8315620-1 (Version None)
Quarter: 2012Q2

REPORT INFORMATION
  Report Type: 
  Country: None (occurrence: None)
  Receive Date: 20120426
  Receipt Date: 20120425
  Transmission Date: 20120825
  Serious: Yes (Hospitalization)
  Sender: FDA-Public Use
  Company Number: DE-ABBOTT-11P-062-0883620-00

PATIENT
  Sex: Female

DRUGS (1)
  1. HUMIRA [Suspect]
     Indication: RHEUMATOID ARTHRITIS
     Route: 058
     Dates: start: 20100927, end: 20111231

REACTIONS (4)
  - PYELONEPHRITIS [None]
  - STREPTOCOCCAL SEPSIS [None]
  - VOCAL CORD DISORDER [None]
  - RHEUMATOID ARTHRITIS [None]
